FAERS Safety Report 25285473 (Version 4)
Quarter: 2025Q3

REPORT INFORMATION
  Report Type: Report from Study
  Country: US (occurrence: US)
  Receive Date: 20250509
  Receipt Date: 20250821
  Transmission Date: 20251021
  Serious: No
  Sender: SUNOVION
  Company Number: US-SMPA-2025SPA004549AA

PATIENT
  Age: 77 Year
  Sex: Male

DRUGS (12)
  1. ORGOVYX [Suspect]
     Active Substance: RELUGOLIX
     Indication: Prostate cancer
     Dosage: 120 MG, QD
     Route: 048
     Dates: start: 202402
  2. ORGOVYX [Suspect]
     Active Substance: RELUGOLIX
     Dosage: 120 MG, QD
     Route: 048
     Dates: start: 20250307
  3. CALCIUM [Concomitant]
     Active Substance: CALCIUM
  4. CIALIS [Concomitant]
     Active Substance: TADALAFIL
  5. COZAAR [Concomitant]
     Active Substance: LOSARTAN POTASSIUM
  6. METOPROLOL [Concomitant]
     Active Substance: METOPROLOL
  7. PLAVIX [Concomitant]
     Active Substance: CLOPIDOGREL BISULFATE
  8. PROTONIX [Concomitant]
     Active Substance: PANTOPRAZOLE SODIUM
  9. UROXATRAL [Concomitant]
     Active Substance: ALFUZOSIN HYDROCHLORIDE
  10. NUBEQA [Concomitant]
     Active Substance: DAROLUTAMIDE
  11. ATORVASTATIN [Concomitant]
     Active Substance: ATORVASTATIN
  12. METFORMIN [Concomitant]
     Active Substance: METFORMIN HYDROCHLORIDE

REACTIONS (6)
  - Blood cholesterol abnormal [Unknown]
  - Blood glucose abnormal [Unknown]
  - Hypoaesthesia [Unknown]
  - Dizziness [Unknown]
  - Hot flush [Unknown]
  - Constipation [Recovered/Resolved]
